FAERS Safety Report 21911253 (Version 1)
Quarter: 2023Q1

REPORT INFORMATION
  Report Type: Spontaneous
  Country: US (occurrence: None)
  Receive Date: 20230125
  Receipt Date: 20230125
  Transmission Date: 20230417
  Serious: Yes (unspecified)
  Sender: FDA-Public Use
  Company Number: None

PATIENT
  Age: 35 Year
  Sex: Female
  Weight: 61.62 kg

DRUGS (2)
  1. PROHANCE [Suspect]
     Active Substance: GADOTERIDOL
     Indication: Contrast echocardiogram
     Dosage: OTHER FREQUENCY : ONCE;?
     Route: 042
     Dates: start: 20230120, end: 20230120
  2. PROHANCE [Concomitant]
     Active Substance: GADOTERIDOL
     Dates: start: 20230120, end: 20230120

REACTIONS (3)
  - Rash [None]
  - Pruritus [None]
  - Throat tightness [None]

NARRATIVE: CASE EVENT DATE: 20230120
